FAERS Safety Report 13909686 (Version 1)
Quarter: 2017Q3

REPORT INFORMATION
  Report Type: Spontaneous
  Country: US (occurrence: US)
  Receive Date: 20170828
  Receipt Date: 20170828
  Transmission Date: 20171127
  Serious: No
  Sender: FDA-Public Use
  Company Number: US-SHIRE-US201718302

PATIENT
  Sex: Female

DRUGS (1)
  1. XIIDRA [Suspect]
     Active Substance: LIFITEGRAST
     Indication: DRY EYE
     Dosage: 1 GTT, TWICE A DAY ONE DROP IN EACH EYE MORNING AND NIGHT
     Route: 047

REACTIONS (4)
  - Instillation site pain [Unknown]
  - Product taste abnormal [Unknown]
  - Vision blurred [Unknown]
  - Instillation site reaction [Unknown]
